FAERS Safety Report 22340810 (Version 1)
Quarter: 2023Q2

REPORT INFORMATION
  Report Type: Spontaneous
  Country: RO (occurrence: RO)
  Receive Date: 20230518
  Receipt Date: 20230518
  Transmission Date: 20230721
  Serious: Yes (Other)
  Sender: FDA-Public Use
  Company Number: RO-002147023-NVSC2022RO232155

PATIENT
  Age: 55 Year
  Sex: Female

DRUGS (6)
  1. SECUKINUMAB [Suspect]
     Active Substance: SECUKINUMAB
     Indication: Ankylosing spondylitis
     Dosage: 150 MG, QW
     Route: 058
  2. SECUKINUMAB [Suspect]
     Active Substance: SECUKINUMAB
     Indication: Psoriatic arthropathy
     Dosage: 150 MG, QMO
     Route: 058
  3. SECUKINUMAB [Suspect]
     Active Substance: SECUKINUMAB
     Dosage: 300 MG, QMO
     Route: 058
  4. METHOTREXATE [Concomitant]
     Active Substance: METHOTREXATE
     Indication: Product used for unknown indication
     Dosage: 10 MG, QD
     Route: 065
  5. METHOTREXATE [Concomitant]
     Active Substance: METHOTREXATE
     Dosage: 10 MG, QW
     Route: 065
  6. NEOTIGASON [Concomitant]
     Active Substance: ACITRETIN
     Indication: Product used for unknown indication
     Dosage: 30 MG, QD
     Route: 065

REACTIONS (8)
  - Systemic inflammatory response syndrome [Unknown]
  - Pustular psoriasis [Recovered/Resolved]
  - Rash erythematous [Recovered/Resolved]
  - Skin lesion [Not Recovered/Not Resolved]
  - Arthralgia [Recovered/Resolved]
  - Red blood cell sedimentation rate increased [Unknown]
  - C-reactive protein increased [Unknown]
  - Tendonitis [Unknown]
